FAERS Safety Report 5876350-9 (Version None)
Quarter: 2008Q3

REPORT INFORMATION
  Report Type: 
  Country: None (occurrence: None)
  Receive Date: 20080908
  Receipt Date: 20080825
  Transmission Date: 20090109
  Serious: Yes (Other)
  Sender: FDA-Public Use
  Company Number: 08-001395

PATIENT
  Age: 48 Year
  Sex: Female
  Weight: 56.7 kg

DRUGS (2)
  1. FEMHRT [Suspect]
     Indication: HORMONE THERAPY
     Dosage: 0.5MG/2.5MCG, QD, ORAL
     Route: 048
     Dates: start: 20080816
  2. AMBIEN [Suspect]
     Indication: INSOMNIA
     Dosage: 10 MG, PRN, ORAL
     Route: 048
     Dates: start: 20080201, end: 20080801

REACTIONS (2)
  - FEELING ABNORMAL [None]
  - LOSS OF CONSCIOUSNESS [None]
